FAERS Safety Report 13570863 (Version 1)
Quarter: 2017Q2

REPORT INFORMATION
  Report Type: Spontaneous
  Country: US (occurrence: US)
  Receive Date: 20170523
  Receipt Date: 20170523
  Transmission Date: 20170830
  Serious: No
  Sender: FDA-Public Use
  Company Number: US-TEVA-706954USA

PATIENT
  Age: 77 Year
  Sex: Male
  Weight: 66.74 kg

DRUGS (2)
  1. METOPROLOL SUCCINATE. [Suspect]
     Active Substance: METOPROLOL SUCCINATE
  2. AMLODIPINE W/BENAZEPRIL [Suspect]
     Active Substance: AMLODIPINE BESYLATE\BENAZEPRIL HYDROCHLORIDE
     Dosage: 5 MG/20 MG
     Dates: start: 2006

REACTIONS (1)
  - Pollakiuria [Not Recovered/Not Resolved]
